FAERS Safety Report 24571968 (Version 1)
Quarter: 2024Q4

REPORT INFORMATION
  Report Type: Spontaneous
  Country: US (occurrence: None)
  Receive Date: 20241031
  Receipt Date: 20241031
  Transmission Date: 20250115
  Serious: Yes (Hospitalization)
  Sender: Public
  Company Number: None

PATIENT
  Age: 74 Year
  Sex: Male
  Weight: 101 kg

DRUGS (1)
  1. CLINDAMYCIN HYDROCHLORIDE [Suspect]
     Active Substance: CLINDAMYCIN HYDROCHLORIDE
     Indication: Cellulitis
     Dosage: 450.00 MG ORAL
     Route: 048
     Dates: end: 20240622

REACTIONS (3)
  - Rash maculo-papular [None]
  - Adverse drug reaction [None]
  - Therapy cessation [None]

NARRATIVE: CASE EVENT DATE: 20240622
